FAERS Safety Report 7275891-X (Version None)
Quarter: 2011Q1

REPORT INFORMATION
  Report Type: 
  Country: None (occurrence: None)
  Receive Date: 20110204
  Receipt Date: 20110128
  Transmission Date: 20110831
  Serious: Yes (Hospitalization)
  Sender: FDA-Public Use
  Company Number: A0788634A

PATIENT
  Age: 52 Year
  Sex: Male

DRUGS (1)
  1. AVANDIA [Suspect]
     Dosage: 8MG TWICE PER DAY
     Route: 048
     Dates: start: 20000410, end: 20010108

REACTIONS (6)
  - PULMONARY EMBOLISM [None]
  - CARDIAC FAILURE ACUTE [None]
  - PLEURAL EFFUSION [None]
  - MYOCARDIAL INFARCTION [None]
  - CEREBROVASCULAR ACCIDENT [None]
  - CARDIAC FAILURE CONGESTIVE [None]
